FAERS Safety Report 19262256 (Version 2)
Quarter: 2021Q2

REPORT INFORMATION
  Report Type: Report from Study
  Country: CL (occurrence: CL)
  Receive Date: 20210516
  Receipt Date: 20210604
  Transmission Date: 20210717
  Serious: Yes (Other)
  Sender: FDA-Public Use
  Company Number: NVSC2021CL102284

PATIENT
  Age: 56 Year
  Sex: Male
  Weight: 83 kg

DRUGS (3)
  1. COSENTYX [Suspect]
     Active Substance: SECUKINUMAB
     Dosage: 150 MG, UNKNOWN
     Route: 065
     Dates: start: 20210426
  2. GLICENEX [Concomitant]
     Active Substance: METFORMIN HYDROCHLORIDE
     Indication: DIABETES MELLITUS
     Dosage: 1 DF, BID
     Route: 048
  3. COSENTYX [Suspect]
     Active Substance: SECUKINUMAB
     Indication: PSORIATIC ARTHROPATHY
     Dosage: 150 MG, QMO
     Route: 058
     Dates: start: 20201228

REACTIONS (16)
  - Blood glucose increased [Unknown]
  - Glycosuria [Unknown]
  - Nasopharyngitis [Unknown]
  - Glucose tolerance impaired [Unknown]
  - Sinusitis [Recovered/Resolved]
  - Urinary tract infection [Recovered/Resolved]
  - Diarrhoea [Unknown]
  - Onychomycosis [Unknown]
  - COVID-19 [Recovered/Resolved]
  - Hyperhidrosis [Recovering/Resolving]
  - Chest discomfort [Unknown]
  - Diabetes mellitus [Not Recovered/Not Resolved]
  - Productive cough [Unknown]
  - Headache [Unknown]
  - Illness [Unknown]
  - Dysuria [Recovered/Resolved]

NARRATIVE: CASE EVENT DATE: 20210331
